FAERS Safety Report 8264816-6 (Version None)
Quarter: 2012Q2

REPORT INFORMATION
  Report Type: 
  Country: None (occurrence: None)
  Receive Date: 20120406
  Receipt Date: 20120319
  Transmission Date: 20120825
  Serious: Yes (Hospitalization)
  Sender: FDA-Public Use
  Company Number: TW-SANOFI-AVENTIS-200919259GDDC

PATIENT
  Age: 79 Year
  Sex: Male
  Weight: 54.5 kg

DRUGS (15)
  1. ISMO [Concomitant]
     Dates: start: 20090312
  2. TRIAM ^LICHTENSTEIN^ [Concomitant]
     Dosage: DOSE AS USED: UNK
     Route: 048
     Dates: start: 20090619, end: 20090621
  3. DOCETAXEL [Suspect]
     Dosage: DOSE UNIT: 75 MG/M**2
     Route: 042
     Dates: start: 20090807, end: 20090807
  4. FUROSEMIDE [Concomitant]
     Dosage: DOSE AS USED: UNK
     Dates: start: 20090312
  5. AFLIBERCEPT [Suspect]
     Dosage: DOSE UNIT: 6 MG/KG
     Route: 042
     Dates: start: 20090807, end: 20090807
  6. SENNOSIDE A+B [Concomitant]
     Dosage: DOSE AS USED: UNK
     Dates: start: 20090312
  7. AFLIBERCEPT [Suspect]
     Route: 042
     Dates: start: 20090313, end: 20090313
  8. PREDNISOLONE [Suspect]
     Dosage: DOSE UNIT: 5 MG
     Route: 048
     Dates: start: 20090313, end: 20090809
  9. COUMADIN [Concomitant]
     Dosage: DOSE AS USED: UNK
     Dates: start: 20090211
  10. NEUPOGEN [Concomitant]
     Dosage: DOSE AS USED: UNK
     Dates: start: 20090522, end: 20090523
  11. NEUPOGEN [Concomitant]
     Dosage: DOSE AS USED: UNK
     Dates: start: 20090612, end: 20090612
  12. DOCETAXEL [Suspect]
     Route: 042
     Dates: start: 20090313, end: 20090313
  13. METFORMIN HYDROCHLORIDE [Concomitant]
     Dosage: DOSE AS USED: UNK
     Dates: start: 20090312
  14. OXYBUTYNIN [Concomitant]
     Dosage: DOSE AS USED: UNK
     Dates: start: 20090312
  15. MAGNESIUM OXIDE [Concomitant]
     Dosage: DOSE AS USED: UNK
     Dates: start: 20090312

REACTIONS (1)
  - GASTRIC ULCER [None]
